FAERS Safety Report 8550964-X (Version None)
Quarter: 2012Q3

REPORT INFORMATION
  Report Type: 
  Country: None (occurrence: None)
  Receive Date: 20120730
  Receipt Date: 20120724
  Transmission Date: 20120928
  Serious: Yes (Other)
  Sender: FDA-Public Use
  Company Number: US-PFIZER INC-2012122466

PATIENT
  Sex: Female
  Weight: 102 kg

DRUGS (7)
  1. PREMARIN [Suspect]
     Indication: ATROPHIC VULVOVAGINITIS
  2. METOPROLOL TARTRATE [Concomitant]
     Indication: MYOCARDIAL INFARCTION
     Dosage: 25 MG, 2X/DAY
  3. PREMARIN [Suspect]
     Indication: VULVOVAGINAL PAIN
     Dosage: 0.5 G, 2X/WEEK
     Route: 067
     Dates: start: 20090409
  4. TOPROL-XL [Concomitant]
     Indication: WEIGHT CONTROL
     Dosage: 20 MG 1/2 AT BEDTIME
     Route: 048
  5. SIMVASTATIN [Concomitant]
     Indication: MYOCARDIAL INFARCTION
     Dosage: UNK, DAILY
  6. LIPITOR [Concomitant]
     Indication: BLOOD CHOLESTEROL INCREASED
     Dosage: 20 MG, @ HS
  7. ASPIRIN [Concomitant]
     Indication: MYOCARDIAL INFARCTION
     Dosage: 81 MG, @ HS

REACTIONS (1)
  - TYPE 2 DIABETES MELLITUS [None]
